FAERS Safety Report 5756184-6 (Version None)
Quarter: 2008Q2

REPORT INFORMATION
  Report Type: 
  Country: None (occurrence: None)
  Receive Date: 20080602
  Receipt Date: 20080524
  Transmission Date: 20081010
  Serious: Yes (Other)
  Sender: FDA-Public Use
  Company Number: US-PFIZER INC-2008045343

PATIENT
  Sex: Male
  Weight: 65.8 kg

DRUGS (10)
  1. GLIPIZIDE [Suspect]
     Indication: TYPE 2 DIABETES MELLITUS
     Route: 048
  2. PROGRAF [Concomitant]
  3. MYFORTIC [Concomitant]
  4. MEDROL [Concomitant]
  5. BACTRIM [Concomitant]
  6. PRILOSEC [Concomitant]
  7. VYTORIN [Concomitant]
  8. NEURONTIN [Concomitant]
  9. LASIX [Concomitant]
  10. HYDRALAZINE HCL [Concomitant]

REACTIONS (4)
  - ANOREXIA [None]
  - BLOOD GLUCOSE DECREASED [None]
  - BLOOD GLUCOSE INCREASED [None]
  - THIRST [None]
